FAERS Safety Report 10427905 (Version 1)
Quarter: 2014Q3

REPORT INFORMATION
  Report Type: Spontaneous
  Country: US (occurrence: None)
  Receive Date: 20140902
  Receipt Date: 20140902
  Transmission Date: 20150326
  Serious: Yes (Death)
  Sender: FDA-Public Use
  Company Number: None

PATIENT
  Age: 12 Year
  Sex: Female
  Weight: 45.36 kg

DRUGS (1)
  1. SAVELLA [Suspect]
     Active Substance: MILNACIPRAN HYDROCHLORIDE
     Indication: NEURALGIA
     Dosage: 1 PILL TAKEN BY MOUTH
     Route: 048

REACTIONS (17)
  - Vomiting [None]
  - Faecaloma [None]
  - Milk soy protein intolerance [None]
  - Constipation [None]
  - Impaired gastric emptying [None]
  - Nausea [None]
  - Unevaluable event [None]
  - Loss of consciousness [None]
  - Eructation [None]
  - Headache [None]
  - Abdominal pain [None]
  - Flatulence [None]
  - Hyperhidrosis [None]
  - Cow^s milk intolerance [None]
  - Feeling hot [None]
  - Micturition urgency [None]
  - Coeliac disease [None]

NARRATIVE: CASE EVENT DATE: 20111215
